FAERS Safety Report 17765531 (Version 1)
Quarter: 2020Q2

REPORT INFORMATION
  Report Type: Spontaneous
  Country: US (occurrence: US)
  Receive Date: 20200511
  Receipt Date: 20200511
  Transmission Date: 20200714
  Serious: No
  Sender: FDA-Public Use
  Company Number: US-SA-2020SA119205

PATIENT
  Sex: Female

DRUGS (17)
  1. SYNTHROID [Concomitant]
     Active Substance: LEVOTHYROXINE SODIUM
  2. PIMECROLIMUS. [Concomitant]
     Active Substance: PIMECROLIMUS
  3. LIOTHYRONINE SODIUM. [Concomitant]
     Active Substance: LIOTHYRONINE SODIUM
  4. HALOBETASOL PROPIONATE. [Concomitant]
     Active Substance: HALOBETASOL PROPIONATE
  5. FISH OIL [Concomitant]
     Active Substance: FISH OIL
  6. CYCLOSPORINE. [Concomitant]
     Active Substance: CYCLOSPORINE
  7. DROSPIRENONE/ETHINYLESTRADIOL [Concomitant]
     Active Substance: DROSPIRENONE\ETHINYL ESTRADIOL
  8. TRIAMCINOLONE ACETONIDE. [Concomitant]
     Active Substance: TRIAMCINOLONE ACETONIDE
  9. HYDROCORTISONE. [Concomitant]
     Active Substance: HYDROCORTISONE
  10. CALCIUM CARBONATE. [Concomitant]
     Active Substance: CALCIUM CARBONATE
  11. FAMOTIDINE. [Concomitant]
     Active Substance: FAMOTIDINE
  12. DUPIXENT [Suspect]
     Active Substance: DUPILUMAB
     Indication: DERMATITIS ATOPIC
     Dosage: 300 MG, QOW
     Route: 058
  13. MULTIVITAMINS [VITAMINS NOS] [Concomitant]
     Active Substance: VITAMINS
  14. SELENIUM [Concomitant]
     Active Substance: SELENIUM
  15. BACLOFEN. [Concomitant]
     Active Substance: BACLOFEN
  16. IVERMECTIN. [Concomitant]
     Active Substance: IVERMECTIN
  17. MAGNESIUM [Concomitant]
     Active Substance: MAGNESIUM

REACTIONS (1)
  - Injection site pain [Unknown]
